FAERS Safety Report 24369103 (Version 1)
Quarter: 2024Q3

REPORT INFORMATION
  Report Type: Spontaneous
  Country: CN (occurrence: CN)
  Receive Date: 20240927
  Receipt Date: 20240927
  Transmission Date: 20241016
  Serious: Yes (Hospitalization)
  Sender: OCTAPHARMA
  Company Number: CN-OCTA-ALB15924

PATIENT
  Age: 72 Year
  Sex: Male

DRUGS (1)
  1. ALBUMIN HUMAN [Suspect]
     Active Substance: ALBUMIN HUMAN
     Indication: Hypoproteinaemia
     Route: 041
     Dates: start: 20240831, end: 20240831

REACTIONS (13)
  - Hypoaesthesia [Recovering/Resolving]
  - Limb discomfort [Recovering/Resolving]
  - Chest discomfort [Recovering/Resolving]
  - Palpitations [Recovering/Resolving]
  - Dyspnoea [Recovering/Resolving]
  - Tremor [Unknown]
  - Pallor [Unknown]
  - Lip discolouration [Unknown]
  - Infusion related reaction [Unknown]
  - Cardiac failure acute [Unknown]
  - Atrial fibrillation [Unknown]
  - Anxiety [Unknown]
  - Restlessness [Unknown]

NARRATIVE: CASE EVENT DATE: 20240831
